FAERS Safety Report 5241470-9 (Version None)
Quarter: 2007Q1

REPORT INFORMATION
  Report Type: 
  Country: None (occurrence: None)
  Receive Date: 20070220
  Receipt Date: 20070216
  Transmission Date: 20070707
  Serious: Yes (Hospitalization)
  Sender: FDA-Public Use
  Company Number: US-GLAXOSMITHKLINE-A0637997A

PATIENT
  Sex: Female

DRUGS (8)
  1. FLONASE [Suspect]
     Dosage: 2PUFF PER DAY
     Route: 045
  2. FLOVENT [Suspect]
     Indication: ASTHMA
     Dosage: 2PUFF TWICE PER DAY
     Route: 055
  3. ALBUTEROL [Concomitant]
  4. FUROSEMIDE [Concomitant]
  5. POTASSIUM ACETATE [Concomitant]
  6. DILTIAZEM [Concomitant]
  7. SPIRIVA [Concomitant]
  8. DIGOXIN [Concomitant]

REACTIONS (8)
  - BRONCHITIS [None]
  - CARDIAC VALVE DISEASE [None]
  - DYSPNOEA [None]
  - PARAESTHESIA [None]
  - PERICARDIAL EFFUSION [None]
  - PERICARDITIS [None]
  - PNEUMONIA [None]
  - TREMOR [None]
